FAERS Safety Report 17074467 (Version 1)
Quarter: 2019Q4

REPORT INFORMATION
  Report Type: Spontaneous
  Country: US (occurrence: US)
  Receive Date: 20191126
  Receipt Date: 20191126
  Transmission Date: 20200122
  Serious: No
  Sender: FDA-Public Use
  Company Number: US-MYLANLABS-2019M1109430

PATIENT
  Age: 76 Year
  Sex: Female

DRUGS (4)
  1. LATANOPROST. [Concomitant]
     Active Substance: LATANOPROST
     Dosage: UNK
  2. ATENOLOL. [Concomitant]
     Active Substance: ATENOLOL
     Dosage: UNK
  3. METOPROLOL TARTRATE TABLETS USP [Suspect]
     Active Substance: METOPROLOL TARTRATE
     Indication: HYPERTENSION
     Dosage: 20 MILLIGRAM, BID
     Route: 048
     Dates: start: 201806
  4. METOPROLOL TARTRATE TABLETS USP [Suspect]
     Active Substance: METOPROLOL TARTRATE
     Dosage: 12.5 MILLIGRAM, BID
     Route: 048

REACTIONS (10)
  - Chills [Recovering/Resolving]
  - Heart rate increased [Recovering/Resolving]
  - Weight decreased [Recovering/Resolving]
  - Hypertension [Recovering/Resolving]
  - Lip swelling [Recovering/Resolving]
  - Peripheral swelling [Recovering/Resolving]
  - Rhinorrhoea [Recovering/Resolving]
  - Headache [Recovering/Resolving]
  - Eye swelling [Recovering/Resolving]
  - Urticaria [Recovering/Resolving]

NARRATIVE: CASE EVENT DATE: 201906
